FAERS Safety Report 6469643-8 (Version None)
Quarter: 2009Q4

REPORT INFORMATION
  Report Type: 
  Country: None (occurrence: None)
  Receive Date: 20091203
  Receipt Date: 20071114
  Transmission Date: 20100525
  Serious: Yes (Death)
  Sender: FDA-Public Use
  Company Number: TR-ELI_LILLY_AND_COMPANY-TR200711003758

PATIENT
  Age: 69 Year
  Sex: Female

DRUGS (2)
  1. HUMALOG MIX 75/25 [Suspect]
     Indication: BLOOD GLUCOSE INCREASED
     Dosage: 2 IU, EACH MORNING
     Route: 058
     Dates: start: 20070901
  2. HUMALOG MIX 75/25 [Suspect]
     Dosage: 2 IU, EACH EVENING
     Route: 058
     Dates: start: 20070901

REACTIONS (1)
  - MYOCARDIAL INFARCTION [None]
